FAERS Safety Report 4377615-2 (Version None)
Quarter: 2004Q2

REPORT INFORMATION
  Report Type: 
  Country: None (occurrence: None)
  Receive Date: 20040615
  Receipt Date: 20040604
  Transmission Date: 20050107
  Serious: Yes (Other)
  Sender: FDA-Public Use
  Company Number: JP-GLAXOSMITHKLINE-B0334925A

PATIENT
  Age: 35 Year
  Sex: Male

DRUGS (5)
  1. PAXIL [Suspect]
     Indication: DEPRESSION
     Dosage: 40MG PER DAY
     Route: 048
     Dates: start: 20040527, end: 20040603
  2. MYSLEE [Concomitant]
     Route: 048
  3. DESYREL [Concomitant]
     Route: 048
  4. ANAFRANIL [Concomitant]
     Route: 065
  5. AMOXAN [Concomitant]
     Route: 048

REACTIONS (1)
  - EPILEPSY [None]
